FAERS Safety Report 9674225 (Version 4)
Quarter: 2014Q1

REPORT INFORMATION
  Report Type: Spontaneous
  Country: SE (occurrence: SE)
  Receive Date: 20131107
  Receipt Date: 20140327
  Transmission Date: 20141002
  Serious: Yes (Disabling, Other)
  Sender: FDA-Public Use
  Company Number: SE-PFIZER INC-2013313384

PATIENT
  Age: 70 Year
  Sex: Female

DRUGS (8)
  1. LYRICA [Suspect]
     Indication: JOINT DISLOCATION
     Dosage: 75 MG, 2X/DAY
     Dates: start: 2009
  2. LYRICA [Suspect]
     Indication: NERVE INJURY
     Dosage: 150 MG IN THE MORNING AND 75MG AT NIGHT
     Dates: start: 201309
  3. LYRICA [Suspect]
     Indication: PAIN IN EXTREMITY
     Dosage: 50 MG, 2X/DAY
     Dates: start: 20131108
  4. LYRICA [Suspect]
     Indication: ANXIETY
     Dosage: 25 MG, 2X/DAY
  5. LITHIUM [Concomitant]
     Indication: BIPOLAR I DISORDER
     Dosage: UNK
     Dates: start: 1993
  6. CIPRAMIL [Concomitant]
     Dosage: 30 MG, DAILY
  7. CITODON [Concomitant]
     Dosage: 6 DF, DAILY
  8. XANOR - SLOW RELEASE [Concomitant]
     Dosage: 0.25 MG, 2X/DAY

REACTIONS (7)
  - Balance disorder [Recovering/Resolving]
  - Fall [Not Recovered/Not Resolved]
  - Limb injury [Not Recovered/Not Resolved]
  - Feeling abnormal [Unknown]
  - Pain in extremity [Not Recovered/Not Resolved]
  - Drug ineffective for unapproved indication [Unknown]
  - Impaired work ability [Unknown]
